FAERS Safety Report 15802870 (Version 1)
Quarter: 2019Q1

REPORT INFORMATION
  Report Type: Spontaneous
  Country: US (occurrence: US)
  Receive Date: 20190109
  Receipt Date: 20190109
  Transmission Date: 20190417
  Serious: Yes (Death, Hospitalization, Other)
  Sender: FDA-Public Use
  Company Number: US-PFIZER INC-2019006859

PATIENT
  Age: 37 Year
  Sex: Male

DRUGS (5)
  1. MECLIZINE HCL [Suspect]
     Active Substance: MECLIZINE HYDROCHLORIDE
     Dosage: UNK
     Route: 048
  2. HYDROXYZINE PAMOATE. [Suspect]
     Active Substance: HYDROXYZINE PAMOATE
     Dosage: UNK
     Route: 048
  3. ESTRADIOL CIPIONATE [Suspect]
     Active Substance: ESTRADIOL CYPIONATE
     Dosage: UNK
     Route: 048
  4. AMLODIPINE BESILATE [Suspect]
     Active Substance: AMLODIPINE BESYLATE
     Dosage: UNK
     Route: 048
  5. LORATADINE. [Suspect]
     Active Substance: LORATADINE
     Dosage: UNK
     Route: 048

REACTIONS (1)
  - Completed suicide [Fatal]

NARRATIVE: CASE EVENT DATE: 2017
